FAERS Safety Report 5619721-8 (Version None)
Quarter: 2008Q1

REPORT INFORMATION
  Report Type: 
  Country: None (occurrence: None)
  Receive Date: 20080208
  Receipt Date: 20071105
  Transmission Date: 20080703
  Serious: No
  Sender: FDA-Public Use
  Company Number: A0691455A

PATIENT

DRUGS (1)
  1. ALTABAX [Suspect]
     Indication: IMPETIGO
     Dosage: 1APP ALTERNATE DAYS
     Route: 061

REACTIONS (1)
  - PAIN [None]
